FAERS Safety Report 4932048-2 (Version None)
Quarter: 2006Q1

REPORT INFORMATION
  Report Type: 
  Country: None (occurrence: None)
  Receive Date: 20060303
  Receipt Date: 20060223
  Transmission Date: 20060701
  Serious: Yes (Other)
  Sender: FDA-Public Use
  Company Number: AU-GLAXOSMITHKLINE-B0413524A

PATIENT
  Age: 38 Year
  Sex: Female

DRUGS (1)
  1. NICABATE CQ 4MG LOZENGE [Suspect]
     Indication: SMOKING CESSATION THERAPY
     Dosage: 4MG EIGHTEEN TIMES PER DAY
     Route: 002
     Dates: start: 20040101

REACTIONS (2)
  - DEPENDENCE [None]
  - DRUG DEPENDENCE [None]
